FAERS Safety Report 18286406 (Version 1)
Quarter: 2020Q3

REPORT INFORMATION
  Report Type: Report from Study
  Country: PK (occurrence: PK)
  Receive Date: 20200920
  Receipt Date: 20200920
  Transmission Date: 20201103
  Serious: Yes (Death, Other)
  Sender: FDA-Public Use
  Company Number: NVSC2020PK254950

PATIENT
  Age: 20 Year
  Sex: Male

DRUGS (1)
  1. SANDIMMUN NEORAL [Suspect]
     Active Substance: CYCLOSPORINE
     Indication: APLASTIC ANAEMIA
     Dosage: 125 MG, BID (25 MG + 100 MG)
     Route: 048
     Dates: start: 20170613

REACTIONS (6)
  - Haemorrhage [Unknown]
  - Thrombocytopenia [Unknown]
  - Product use in unapproved indication [Unknown]
  - Asthenia [Unknown]
  - Neoplasm malignant [Not Recovered/Not Resolved]
  - Death [Fatal]

NARRATIVE: CASE EVENT DATE: 201810
